FAERS Safety Report 6421749-5 (Version None)
Quarter: 2009Q4

REPORT INFORMATION
  Report Type: 
  Country: None (occurrence: None)
  Receive Date: 20091030
  Receipt Date: 20091027
  Transmission Date: 20100525
  Serious: Yes (Disabling)
  Sender: FDA-Public Use
  Company Number: US-ELI_LILLY_AND_COMPANY-US200910007268

PATIENT

DRUGS (1)
  1. HUMULIN R [Suspect]

REACTIONS (1)
  - DISABILITY [None]
